FAERS Safety Report 21110718 (Version 2)
Quarter: 2022Q3

REPORT INFORMATION
  Report Type: Report from Study
  Country: US (occurrence: US)
  Receive Date: 20220721
  Receipt Date: 20220726
  Transmission Date: 20221026
  Serious: No
  Sender: FDA-Public Use
  Company Number: US-NOVARTISTESTPH-NVSC2022US164691

PATIENT
  Sex: Female

DRUGS (2)
  1. JADENU [Suspect]
     Active Substance: DEFERASIROX
     Indication: Product used for unknown indication
     Dosage: 360 MG, QID
     Route: 065
     Dates: start: 20190404
  2. JADENU [Suspect]
     Active Substance: DEFERASIROX
     Dosage: 2 DOSAGE FORM, QD (TWO TABS ONCE DAILY)
     Route: 065

REACTIONS (1)
  - Diarrhoea [Unknown]
